FAERS Safety Report 6914796-8 (Version None)
Quarter: 2010Q3

REPORT INFORMATION
  Report Type: 
  Country: None (occurrence: None)
  Receive Date: 20100804
  Receipt Date: 20100720
  Transmission Date: 20110219
  Serious: Yes (Other)
  Sender: FDA-Public Use
  Company Number: A-NJ2010-36839

PATIENT
  Age: 74 Year
  Sex: Female

DRUGS (3)
  1. TRACLEER [Suspect]
     Indication: PULMONARY ARTERIAL HYPERTENSION
     Dosage: 62.5 MG, BID, ORAL
     Route: 048
     Dates: start: 20100516, end: 20100525
  2. WARFARIN SODIUM [Concomitant]
  3. CALCIUM CHANNEL BLOCKERS [Concomitant]

REACTIONS (11)
  - ABDOMINAL PAIN UPPER [None]
  - ASCITES [None]
  - BACK PAIN [None]
  - CARDIAC FLUTTER [None]
  - DIZZINESS [None]
  - DYSPNOEA [None]
  - NASAL CONGESTION [None]
  - NEUROPATHY PERIPHERAL [None]
  - OEDEMA PERIPHERAL [None]
  - RENAL DISORDER [None]
  - SWELLING FACE [None]
